FAERS Safety Report 8887184 (Version 1)
Quarter: 2012Q4

REPORT INFORMATION
  Report Type: 
  Country: US (occurrence: US)
  Receive Date: 20121105
  Receipt Date: 20121105
  Transmission Date: 20130627
  Serious: Yes (Hospitalization, Other)
  Sender: FDA-Public Use
  Company Number: US-PFIZER INC-2012274879

PATIENT
  Age: 87 Year
  Sex: Female
  Weight: 71.2 kg

DRUGS (14)
  1. LYRICA [Suspect]
     Indication: PAIN
     Dosage: 75 mg, 2x/day
     Route: 048
  2. FLORINEF [Concomitant]
     Dosage: 1 mg, UNK
  3. DIOVAN [Concomitant]
     Dosage: UNK
  4. BYSTOLIC [Concomitant]
     Dosage: UNK
  5. NORVASC [Concomitant]
     Dosage: UNK
  6. FOLIC ACID [Concomitant]
     Dosage: UNK
  7. ASPIRIN [Concomitant]
     Dosage: UNK
  8. PROTONIX [Concomitant]
     Dosage: UNK
  9. GABAPENTIN [Concomitant]
     Dosage: UNK
  10. LIDOCAINE [Concomitant]
     Dosage: UNK
  11. TRAMADOL [Concomitant]
     Dosage: UNK
  12. LASIX [Concomitant]
     Dosage: UNK
  13. POTASSIUM [Concomitant]
     Dosage: UNK
  14. CHOLESTYRAMINE RESIN [Concomitant]
     Dosage: UNK

REACTIONS (2)
  - Transient ischaemic attack [Unknown]
  - Urinary tract infection [Unknown]
